FAERS Safety Report 10041142 (Version 2)
Quarter: 2014Q2

REPORT INFORMATION
  Report Type: Report from Study
  Country: US (occurrence: US)
  Receive Date: 20140327
  Receipt Date: 20140605
  Transmission Date: 20141212
  Serious: Yes (Hospitalization, Other)
  Sender: FDA-Public Use
  Company Number: PHEH2014US005942

PATIENT
  Sex: Female

DRUGS (2)
  1. TOBI [Suspect]
     Indication: RESPIRATORY DISORDER
     Dosage: UNK UKN, UNK
  2. TOBI [Suspect]
     Indication: BRONCHIECTASIS

REACTIONS (1)
  - Chronic obstructive pulmonary disease [Unknown]
